FAERS Safety Report 7441868-4 (Version None)
Quarter: 2011Q2

REPORT INFORMATION
  Report Type: 
  Country: None (occurrence: None)
  Receive Date: 20110428
  Receipt Date: 20110414
  Transmission Date: 20111010
  Serious: Yes (Hospitalization)
  Sender: FDA-Public Use
  Company Number: IT-ELI_LILLY_AND_COMPANY-IT201103003898

PATIENT
  Sex: Female

DRUGS (13)
  1. TAVOR [Concomitant]
  2. MODURETIC 5-50 [Concomitant]
     Route: 048
  3. DELORAZEPAM [Concomitant]
     Indication: AFFECTIVE DISORDER
     Dosage: 1 MG, AS NEEDED
     Route: 048
     Dates: start: 20101030, end: 20101030
  4. TRIATEC [Concomitant]
     Dosage: 2.5 MG, EACH MORNING
     Route: 048
  5. ZYPREXA [Suspect]
     Indication: AFFECTIVE DISORDER
     Dosage: 5 MG, DAILY (1/D)
     Route: 048
     Dates: start: 20101030
  6. RIVOTRIL [Concomitant]
     Dosage: 10 D/F, 3/D
  7. TAVOR [Concomitant]
     Indication: AFFECTIVE DISORDER
     Dosage: 2.5 MG, DAILY (1/D)
     Route: 048
     Dates: start: 20101030
  8. TICLID [Concomitant]
     Dosage: 1 D/F, EACH MORNING
     Route: 047
  9. FUROSEMIDE [Concomitant]
     Dosage: UNK, EACH MORNING
  10. ZYPREXA [Suspect]
     Dosage: 5 MG, 2/D
     Route: 048
  11. CITALOPRAM HYDROBROMIDE [Concomitant]
     Dosage: 0.5 D/F, 2/D
  12. ZYPREXA [Suspect]
     Dosage: UNK, UNKNOWN
     Dates: start: 20101030, end: 20101030
  13. RIVOTRIL [Concomitant]
     Indication: AFFECTIVE DISORDER
     Dosage: 0.5 D/F, 2/D
     Route: 048
     Dates: start: 20101030, end: 20101030

REACTIONS (2)
  - DRUG INEFFECTIVE [None]
  - DRUG ABUSE [None]
